FAERS Safety Report 18449501 (Version 1)
Quarter: 2020Q4

REPORT INFORMATION
  Report Type: Spontaneous
  Country: US (occurrence: US)
  Receive Date: 20201030
  Receipt Date: 20201030
  Transmission Date: 20210114
  Serious: No
  Sender: FDA-Public Use
  Company Number: US-PFIZER INC-2020158787

PATIENT
  Age: 69 Year
  Sex: Female

DRUGS (1)
  1. INLYTA [Suspect]
     Active Substance: AXITINIB
     Indication: RENAL CANCER
     Dosage: 3 MG, DAILY (AXITINIB (TABLET)-1(OF 1MG) ORAL EVERY AM ^AXITINIB (TABLET)-2(OF 1MG) ORAL AT BEDTIME)
     Route: 048

REACTIONS (1)
  - Diarrhoea [Unknown]
